FAERS Safety Report 11860085 (Version 1)
Quarter: 2015Q4

REPORT INFORMATION
  Report Type: Spontaneous
  Country: FR (occurrence: FR)
  Receive Date: 20151222
  Receipt Date: 20151222
  Transmission Date: 20160305
  Serious: Yes (Other)
  Sender: FDA-Public Use
  Company Number: FR-TEVA-619624ISR

PATIENT
  Age: 21 Year
  Sex: Female

DRUGS (1)
  1. MODIODAL 100 MG [Suspect]
     Active Substance: MODAFINIL
     Indication: NARCOLEPSY
     Dosage: 2 DOSAGE FORMS DAILY;
     Route: 048
     Dates: start: 20150720, end: 20150927

REACTIONS (1)
  - Folliculitis [Recovered/Resolved]

NARRATIVE: CASE EVENT DATE: 20150727
